FAERS Safety Report 9640371 (Version 1)
Quarter: 2013Q4

REPORT INFORMATION
  Report Type: Spontaneous
  Country: US (occurrence: None)
  Receive Date: 20131021
  Receipt Date: 20131021
  Transmission Date: 20140711
  Serious: Yes (Hospitalization)
  Sender: FDA-Public Use
  Company Number: QSC-2013-0361

PATIENT
  Age: 39 Year
  Sex: Female
  Weight: 44 kg

DRUGS (5)
  1. H.P. ACTHAR GEL (ADRENOCORTICOTROPIC HORMONE) GEL FOR INJECTION, 80U/ML [Suspect]
     Indication: MULTIPLE SCLEROSIS
     Route: 058
     Dates: start: 20130726, end: 2013
  2. LISINOPRIL (LISINOPRIL) [Concomitant]
  3. LISINOPRIL (LISINOPRIL) [Concomitant]
  4. IBUPROFEN (IBUPROFEN) [Concomitant]
  5. AVONEX (INTERFERON BETA-1A) [Concomitant]

REACTIONS (12)
  - Intracranial pressure increased [None]
  - Visual impairment [None]
  - Papilloedema [None]
  - Musculoskeletal stiffness [None]
  - Paraesthesia [None]
  - Epistaxis [None]
  - Headache [None]
  - Blood pressure increased [None]
  - Hyperacusis [None]
  - Photopsia [None]
  - Asthenopia [None]
  - Weight increased [None]
